FAERS Safety Report 8402590-0 (Version None)
Quarter: 2012Q1

REPORT INFORMATION
  Report Type: 
  Country: None (occurrence: None)
  Receive Date: 20120323
  Receipt Date: 20110428
  Transmission Date: 20120608
  Serious: Yes (Other)
  Sender: FDA-Public Use
  Company Number: 163-21880-11050135

PATIENT
  Age: 79 Year
  Sex: Female

DRUGS (2)
  1. REVLIMID [Suspect]
     Indication: MYELODYSPLASTIC SYNDROME
     Dosage: 10 MG, DAILY X 28 DAYS, PO; 5 MG, QHS X 28 DAYS, PO
     Route: 048
     Dates: start: 20110325
  2. REVLIMID [Suspect]
     Indication: MYELODYSPLASTIC SYNDROME
     Dosage: 10 MG, DAILY X 28 DAYS, PO; 5 MG, QHS X 28 DAYS, PO
     Route: 048
     Dates: start: 20110225, end: 20110324

REACTIONS (1)
  - FULL BLOOD COUNT DECREASED [None]
